FAERS Safety Report 6775129-3 (Version None)
Quarter: 2010Q2

REPORT INFORMATION
  Report Type: 
  Country: None (occurrence: None)
  Receive Date: 20100617
  Receipt Date: 20100607
  Transmission Date: 20101027
  Serious: Yes (Hospitalization, Other)
  Sender: FDA-Public Use
  Company Number: SE-NOVOPROD-308241

PATIENT
  Age: 38 Year
  Sex: Female
  Weight: 150 kg

DRUGS (4)
  1. NOVORAPID [Suspect]
     Indication: TYPE 1 DIABETES MELLITUS
     Dosage: BETWEEN 80-90 IU DAILY
     Dates: start: 20030101
  2. NOVORAPID [Suspect]
     Dosage: BETWEEN 80-90 IU DAILY
     Route: 058
  3. NOVORAPID [Suspect]
     Dosage: BETWEEN 80-90 IU DAILY
     Route: 058
     Dates: start: 20050101
  4. METFORMIN [Concomitant]

REACTIONS (4)
  - BLOOD GLUCOSE ABNORMAL [None]
  - BLOOD GLUCOSE INCREASED [None]
  - DIABETIC KETOACIDOSIS [None]
  - HYPERGLYCAEMIA [None]
